FAERS Safety Report 6929555-X (Version None)
Quarter: 2010Q3

REPORT INFORMATION
  Report Type: 
  Country: None (occurrence: None)
  Receive Date: 20100813
  Receipt Date: 20100805
  Transmission Date: 20110219
  Serious: Yes (Other)
  Sender: FDA-Public Use
  Company Number: A0826133A

PATIENT
  Age: 84 Year
  Sex: Male

DRUGS (6)
  1. KETOCONAZOLE [Suspect]
     Indication: PROSTATE CANCER
     Dosage: 400 MG/ THREE TIMES PER DAY/ ORAL
     Route: 048
  2. LOVASTATIN [Concomitant]
  3. HYDROCORTISONE [Concomitant]
  4. HYPOGLYCEMIC MEDICATION [Concomitant]
  5. BICALUTAMIDE [Concomitant]
  6. LEUPROLIDE ACETATE [Concomitant]

REACTIONS (3)
  - HEPATIC STEATOSIS [None]
  - HEPATITIS [None]
  - RHABDOMYOLYSIS [None]
